FAERS Safety Report 6534399-7 (Version None)
Quarter: 2010Q1

REPORT INFORMATION
  Report Type: 
  Country: None (occurrence: None)
  Receive Date: 20100108
  Receipt Date: 20100108
  Transmission Date: 20100710
  Serious: Yes (Hospitalization)
  Sender: FDA-Public Use
  Company Number: None

PATIENT
  Sex: Male
  Weight: 54 kg

DRUGS (6)
  1. CISPLATIN [Suspect]
     Dosage: 90 MG
  2. ETOPOSIDE [Suspect]
     Dosage: 360 MG
  3. ATARAX [Concomitant]
  4. MANNITOL [Concomitant]
  5. NEXIUM [Concomitant]
  6. OXYCONTIN [Concomitant]

REACTIONS (6)
  - ANAEMIA [None]
  - DEHYDRATION [None]
  - NAUSEA [None]
  - PAIN [None]
  - PANCYTOPENIA [None]
  - VOMITING [None]
